FAERS Safety Report 6293464-2 (Version None)
Quarter: 2009Q3

REPORT INFORMATION
  Report Type: 
  Country: None (occurrence: None)
  Receive Date: 20090803
  Receipt Date: 20090728
  Transmission Date: 20100115
  Serious: No
  Sender: FDA-Public Use
  Company Number: US-ASTRAZENECA-2009UW21412

PATIENT
  Age: 54 Year
  Sex: Female
  Weight: 81.6 kg

DRUGS (3)
  1. CRESTOR [Suspect]
     Indication: BLOOD CHOLESTEROL
     Route: 048
     Dates: start: 20090601
  2. LISINOPRIL AND HYDROCHLOROTHIAZIDE [Concomitant]
  3. PRILOSEC [Concomitant]

REACTIONS (2)
  - NAUSEA [None]
  - VOMITING [None]
